FAERS Safety Report 10564762 (Version 2)
Quarter: 2014Q4

REPORT INFORMATION
  Report Type: Spontaneous
  Country: DE (occurrence: DE)
  Receive Date: 20141105
  Receipt Date: 20141105
  Transmission Date: 20150529
  Serious: Yes (Hospitalization)
  Sender: FDA-Public Use
  Company Number: DE-AUROBINDO-AUR-APL-2014-10250

PATIENT
  Age: 63 Year
  Sex: Female
  Weight: 72 kg

DRUGS (3)
  1. OXYBUTYNIN [Interacting]
     Active Substance: OXYBUTYNIN
     Indication: PRODUCT USED FOR UNKNOWN INDICATION
     Dosage: 5 MG, EVERY MORNING
     Route: 048
  2. RAMIPRIL 2.5MG [Suspect]
     Active Substance: RAMIPRIL
     Indication: PRODUCT USED FOR UNKNOWN INDICATION
     Dosage: 2.5 MG, EVERY MORNING
     Route: 048
     Dates: start: 2008
  3. ANASTROZOLE. [Interacting]
     Active Substance: ANASTROZOLE
     Indication: PRODUCT USED FOR UNKNOWN INDICATION
     Dosage: 1 MG, EVERY MORNING
     Route: 048
     Dates: start: 2006

REACTIONS (13)
  - Pruritus [Recovered/Resolved]
  - Macrophage activation [Recovered/Resolved]
  - Transaminases increased [Recovered/Resolved]
  - Alanine aminotransferase increased [Recovered/Resolved]
  - Hepatitis acute [Recovered/Resolved]
  - Fatigue [Recovered/Resolved]
  - Drug interaction [Recovered/Resolved]
  - Cholestasis [Recovered/Resolved]
  - Faeces discoloured [Recovered/Resolved]
  - Aspartate aminotransferase increased [Recovered/Resolved]
  - Hepatocellular injury [Recovered/Resolved]
  - Jaundice [Recovered/Resolved]
  - Chromaturia [Recovered/Resolved]
